FAERS Safety Report 13097251 (Version 7)
Quarter: 2017Q2

REPORT INFORMATION
  Report Type: Report from Study
  Country: US (occurrence: US)
  Receive Date: 20170109
  Receipt Date: 20170525
  Transmission Date: 20170830
  Serious: Yes (Other)
  Sender: FDA-Public Use
  Company Number: US-PFIZER INC-2016559094

PATIENT
  Age: 64 Year
  Sex: Female

DRUGS (2)
  1. IBRANCE [Suspect]
     Active Substance: PALBOCICLIB
     Dosage: 100 MG, CYCLIC (ONCE DAILY FOR 21 CONSECUTIVE DAYS FOLLOWED BY 7 DAYS OFF, 3 WEEKS ON)
     Route: 048
     Dates: start: 20161228
  2. IBRANCE [Suspect]
     Active Substance: PALBOCICLIB
     Indication: BREAST CANCER
     Dosage: 125 MG, CYCLIC (ONCE DAILY FOR 21 CONSECUTIVE DAYS FOLLOWED BY 7 DAYS OFF,  3 WEEKS ON)
     Route: 048
     Dates: start: 20161124, end: 20161214

REACTIONS (11)
  - Bone marrow failure [Unknown]
  - Fatigue [Not Recovered/Not Resolved]
  - Viral upper respiratory tract infection [Unknown]
  - White blood cell count decreased [Not Recovered/Not Resolved]
  - Cough [Unknown]
  - Inner ear inflammation [Unknown]
  - Asthenia [Unknown]
  - Burning sensation [Not Recovered/Not Resolved]
  - Sneezing [Unknown]
  - Red blood cell count decreased [Unknown]
  - Neuropathy peripheral [Not Recovered/Not Resolved]
